FAERS Safety Report 4853263-2 (Version None)
Quarter: 2005Q4

REPORT INFORMATION
  Report Type: 
  Country: None (occurrence: None)
  Receive Date: 20051214
  Receipt Date: 20051121
  Transmission Date: 20060501
  Serious: Yes (Other)
  Sender: FDA-Public Use
  Company Number: DE-SANOFI-SYNTHELABO-A04200501011

PATIENT
  Sex: Female
  Weight: 70 kg

DRUGS (7)
  1. PLAVIX [Suspect]
     Indication: MYOCARDIAL INFARCTION
     Route: 048
     Dates: start: 20051020, end: 20051114
  2. PLAVIX [Suspect]
     Indication: CORONARY ANGIOPLASTY
     Route: 048
     Dates: start: 20051020, end: 20051114
  3. ASPIRIN [Suspect]
     Indication: CORONARY ARTERY DISEASE
     Route: 048
     Dates: start: 20050815, end: 20051114
  4. PANTOZOL [Concomitant]
     Indication: PROPHYLAXIS
     Route: 048
     Dates: start: 20051020
  5. METOHEXAL [Concomitant]
     Indication: CORONARY ARTERY DISEASE
     Dosage: UNK
     Route: 048
     Dates: start: 20050817
  6. PRAXITEN [Concomitant]
     Indication: INSOMNIA
     Dosage: UNK
     Route: 048
  7. SORTIS [Concomitant]
     Indication: HYPERCHOLESTEROLAEMIA
     Route: 048
     Dates: start: 20050817

REACTIONS (4)
  - ANAEMIA [None]
  - COLITIS [None]
  - DIVERTICULITIS INTESTINAL HAEMORRHAGIC [None]
  - HAEMATOCHEZIA [None]
